FAERS Safety Report 19969587 (Version 1)
Quarter: 2021Q4

REPORT INFORMATION
  Report Type: Spontaneous
  Country: FR (occurrence: FR)
  Receive Date: 20211019
  Receipt Date: 20211019
  Transmission Date: 20220303
  Serious: Yes (Hospitalization, Other)
  Sender: FDA-Public Use
  Company Number: FR-ABBVIE-21K-056-4124312-00

PATIENT
  Age: 29 Year
  Sex: Male
  Weight: 75 kg

DRUGS (2)
  1. DEPAKOTE [Suspect]
     Active Substance: DIVALPROEX SODIUM
     Indication: Bipolar disorder
     Route: 048
     Dates: start: 202107, end: 2021
  2. DEPAKOTE [Suspect]
     Active Substance: DIVALPROEX SODIUM
     Route: 048
     Dates: start: 20210920

REACTIONS (1)
  - Pancreatitis acute [Recovering/Resolving]

NARRATIVE: CASE EVENT DATE: 20210929
